FAERS Safety Report 9582410 (Version 1)
Quarter: 2013Q4

REPORT INFORMATION
  Report Type: Spontaneous
  Country: US (occurrence: US)
  Receive Date: 20131002
  Receipt Date: 20131002
  Transmission Date: 20140711
  Serious: No
  Sender: FDA-Public Use
  Company Number: US-AMGEN-USASP2013040097

PATIENT
  Age: 61 Year
  Sex: Female
  Weight: 92.06 kg

DRUGS (19)
  1. ENBREL [Suspect]
     Indication: PRODUCT USED FOR UNKNOWN INDICATION
     Dosage: 50 MG, QWK
     Route: 058
  2. CLOBETASOL [Concomitant]
     Dosage: 0.05 %, UNK
  3. DOVONEX [Concomitant]
     Dosage: 0.005 %, UNK
  4. FOLIC ACID [Concomitant]
     Dosage: 1 MG, UNK
  5. SYNTHROID [Concomitant]
     Dosage: 75 MUG, UNK
  6. VITAMIN B12                        /00056201/ [Concomitant]
     Dosage: UNK, 1000 CR
  7. VITAMIN B COMPLEX [Concomitant]
     Dosage: UNK
  8. MULTIVITAMINS, PLAIN [Concomitant]
     Dosage: UNK
  9. PROTONIX [Concomitant]
     Dosage: 40 MG, UNK
  10. DOXYCYCLINE MONOHYDRATE [Concomitant]
     Dosage: 50 MG, UNK
  11. PREMARIN VAGINAL [Concomitant]
     Dosage: 0.625 MG, UNK
  12. FLAXSEED OIL [Concomitant]
     Dosage: 1000 MG, UNK
  13. CALCIUM +D                         /07511201/ [Concomitant]
     Dosage: UNK
  14. FISH OIL [Concomitant]
     Dosage: UNK
  15. IRON [Concomitant]
     Dosage: 28 MG, UNK
  16. RESTASIS [Concomitant]
     Dosage: 0.05 %, UNK, EMU
  17. REFRESH                            /00007001/ [Concomitant]
     Dosage: UNK
  18. TYLENOL                            /00020001/ [Concomitant]
     Dosage: 325 MG, UNK
  19. CYMBALTA [Concomitant]
     Dosage: 30 MG, UNK

REACTIONS (2)
  - Renal disorder [Unknown]
  - Lymphoedema [Unknown]
